FAERS Safety Report 16910239 (Version 1)
Quarter: 2019Q4

REPORT INFORMATION
  Report Type: Spontaneous
  Country: US (occurrence: US)
  Receive Date: 20191011
  Receipt Date: 20191011
  Transmission Date: 20200122
  Serious: Yes (Other)
  Sender: FDA-Public Use
  Company Number: US-009507513-1910USA007005

PATIENT
  Age: 59 Year
  Sex: Male

DRUGS (3)
  1. LENVATINIB MESYLATE [Suspect]
     Active Substance: LENVATINIB MESYLATE
     Indication: HEPATIC CANCER
     Dosage: 12 MILLIGRAM, DAILY
     Route: 048
     Dates: start: 20190504, end: 2019
  2. KEYTRUDA [Suspect]
     Active Substance: PEMBROLIZUMAB
  3. LENVATINIB MESYLATE [Suspect]
     Active Substance: LENVATINIB MESYLATE
     Dosage: 8 MILLIGRAM, DAILY
     Route: 048
     Dates: start: 2019

REACTIONS (2)
  - Drug-induced liver injury [Not Recovered/Not Resolved]
  - Decreased appetite [Not Recovered/Not Resolved]

NARRATIVE: CASE EVENT DATE: 2019
